FAERS Safety Report 10204103 (Version 1)
Quarter: 2014Q2

REPORT INFORMATION
  Report Type: Spontaneous
  Country: GB (occurrence: None)
  Receive Date: 20140523
  Receipt Date: 20140523
  Transmission Date: 20141212
  Serious: Yes (Death, Other)
  Sender: FDA-Public Use
  Company Number: DAV-AE-DIA-14-01

PATIENT
  Age: 12 Day
  Sex: Male

DRUGS (1)
  1. DIAZEPAM [Suspect]
     Indication: MATERNAL EXPOSURE TIMING UNSPECIFIED
     Dosage: MATERNAL

REACTIONS (3)
  - Sudden death [None]
  - Premature baby [None]
  - Low birth weight baby [None]
